FAERS Safety Report 20875057 (Version 3)
Quarter: 2022Q2

REPORT INFORMATION
  Report Type: Spontaneous
  Country: US (occurrence: US)
  Receive Date: 20220526
  Receipt Date: 20220609
  Transmission Date: 20220721
  Serious: Yes (Other)
  Sender: FDA-Public Use
  Company Number: US-CELLTRION INC.-2022US004777

PATIENT

DRUGS (4)
  1. TRUXIMA [Suspect]
     Active Substance: RITUXIMAB-ABBS
     Indication: Granulomatosis with polyangiitis
     Dosage: 890 MG, MONTHLY TIMES 3 DOSES (100 MG X 4 VIALS)
     Dates: start: 20220131
  2. TRUXIMA [Suspect]
     Active Substance: RITUXIMAB-ABBS
     Dosage: 890 MG, MONTHLY TIMES 3 DOSES (500 MG X 1 VIAL)
     Dates: start: 20220131
  3. TRUXIMA [Suspect]
     Active Substance: RITUXIMAB-ABBS
     Dosage: 890 MG, MONTHLY TIMES 3 DOSES (500 MG X 1 VIAL)
  4. TRUXIMA [Suspect]
     Active Substance: RITUXIMAB-ABBS
     Dosage: 890 MG, MONTHLY TIMES 3 DOSES (500 MG X 1 VIAL)

REACTIONS (6)
  - Oxygen saturation decreased [Unknown]
  - Tachypnoea [Unknown]
  - Chills [Unknown]
  - Dyspnoea [Unknown]
  - Wheezing [Unknown]
  - Off label use [Unknown]

NARRATIVE: CASE EVENT DATE: 20220131
